FAERS Safety Report 12180210 (Version 5)
Quarter: 2016Q2

REPORT INFORMATION
  Report Type: Report from Study
  Country: US (occurrence: US)
  Receive Date: 20160315
  Receipt Date: 20160611
  Transmission Date: 20160815
  Serious: Yes (Other)
  Sender: FDA-Public Use
  Company Number: US-AMGEN-USASL2016029776

PATIENT
  Age: 68 Year
  Sex: Female

DRUGS (2)
  1. REPATHA [Suspect]
     Active Substance: EVOLOCUMAB
     Indication: HYPERCHOLESTEROLAEMIA
  2. REPATHA [Suspect]
     Active Substance: EVOLOCUMAB
     Indication: HYPERLIPIDAEMIA
     Dosage: 140 MG, Q2WK
     Route: 065
     Dates: start: 201512

REACTIONS (26)
  - Shock [Unknown]
  - Pain [Unknown]
  - General physical health deterioration [Unknown]
  - Ulcer haemorrhage [Unknown]
  - Pruritus [Unknown]
  - Arthralgia [Unknown]
  - Joint swelling [Unknown]
  - Anaemia [Unknown]
  - Pain in jaw [Unknown]
  - Rotator cuff syndrome [Unknown]
  - Fatigue [Unknown]
  - Muscle spasms [Unknown]
  - Restless legs syndrome [Unknown]
  - Dyspnoea [Not Recovered/Not Resolved]
  - Bone pain [Unknown]
  - Dry skin [Unknown]
  - Abdominal pain upper [Unknown]
  - Ulcer [Unknown]
  - Feeling abnormal [Unknown]
  - Myalgia [Unknown]
  - Hiatus hernia [Unknown]
  - Back pain [Unknown]
  - Insomnia [Unknown]
  - Pain in extremity [Unknown]
  - Heart rate increased [Unknown]
  - Hernia [Unknown]
